FAERS Safety Report 9442999 (Version 1)
Quarter: 2013Q3

REPORT INFORMATION
  Report Type: Spontaneous
  Country: PL (occurrence: PL)
  Receive Date: 20130806
  Receipt Date: 20130806
  Transmission Date: 20140515
  Serious: Yes (Other)
  Sender: FDA-Public Use
  Company Number: PL-ACTAVIS-2013-13626

PATIENT
  Age: 26 Year
  Sex: Female

DRUGS (2)
  1. PACLITAXEL (UNKNOWN) [Suspect]
     Indication: OVARIAN CANCER
     Dosage: 297.52 MG, UNKNOWN
     Route: 042
     Dates: start: 20130703, end: 20130703
  2. CARBOPLATIN [Concomitant]
     Indication: OVARIAN CANCER
     Dosage: 595.04 MG, UNKNOWN
     Route: 065
     Dates: start: 20130703, end: 20130703

REACTIONS (4)
  - Dyspnoea [Unknown]
  - Flushing [Unknown]
  - Erythema [Unknown]
  - Erythema [Unknown]
